FAERS Safety Report 8533138 (Version 2)
Quarter: 2012Q4

REPORT INFORMATION
  Report Type: 
  Country: US (occurrence: US)
  Receive Date: 20120427
  Receipt Date: 20120903
  Transmission Date: 20130627
  Serious: Yes (Hospitalization, Disabling, Other)
  Sender: FDA-Public Use
  Company Number: US-PFIZER INC-2012103482

PATIENT
  Age: 43 Year
  Sex: Male

DRUGS (27)
  1. CHANTIX [Suspect]
     Indication: SMOKING CESSATION THERAPY
     Dosage: starter packs and continuing pack
     Dates: start: 200912, end: 201007
  2. CELEXA [Concomitant]
     Indication: DEPRESSION
     Dosage: UNK
  3. PLAVIX [Concomitant]
     Indication: CORONARY ARTERY DISEASE
     Dosage: UNK
  4. OXYCODONE [Concomitant]
     Indication: PAIN
     Dosage: UNK
  5. DEPAKOTE [Concomitant]
     Indication: BIPOLAR DISORDER
     Dosage: UNK
  6. DEPAKOTE [Concomitant]
     Indication: CONVULSION
  7. PRINIVIL [Concomitant]
     Indication: HYPERTENSION
     Dosage: UNK
  8. PRINIVIL [Concomitant]
     Indication: CARDIAC FAILURE CONGESTIVE
  9. LOPRESSOR [Concomitant]
     Indication: HYPERTENSION
     Dosage: UNK
     Dates: start: 2009
  10. LOPRESSOR [Concomitant]
     Indication: ANGINA PECTORIS
  11. TOPROL [Concomitant]
     Indication: HYPERTENSION
     Dosage: UNK
     Dates: start: 2009
  12. TOPROL [Concomitant]
     Indication: ANGINA PECTORIS
  13. VENTOLIN [Concomitant]
     Indication: CHRONIC OBSTRUCTIVE PULMONARY DISEASE
     Dosage: UNK
     Dates: start: 2009
  14. COMBIVENT [Concomitant]
     Indication: CHRONIC OBSTRUCTIVE PULMONARY DISEASE
     Dosage: UNK
     Dates: start: 2009
  15. BUPROPION [Concomitant]
     Indication: SMOKING CESSATION THERAPY
     Dosage: UNK
     Dates: start: 2009
  16. BUPROPION [Concomitant]
     Indication: DEPRESSION
  17. DESYREL [Concomitant]
     Indication: DEPRESSION
     Dosage: UNK
     Dates: end: 2011
  18. XANAX [Concomitant]
     Indication: ANXIETY
     Dosage: UNK
     Dates: end: 2011
  19. FLEXERIL [Concomitant]
     Indication: MUSCLE RELAXANT THERAPY
     Dosage: UNK
     Dates: end: 2011
  20. LASIX [Concomitant]
     Indication: FLUID RETENTION
     Dosage: UNK
     Dates: end: 2011
  21. SEROQUEL [Concomitant]
     Indication: SCHIZOPHRENIA
     Dosage: UNK
     Dates: end: 2011
  22. INSULIN [Concomitant]
     Indication: TYPE 2 DIABETES MELLITUS
     Dosage: UNK
     Dates: end: 2011
  23. NORVASC [Concomitant]
     Indication: HYPERTENSION
     Dosage: UNK
  24. NORVASC [Concomitant]
     Indication: ANGINA PECTORIS
  25. SOMA [Concomitant]
     Indication: MUSCLE RELAXANT THERAPY
     Dosage: UNK
  26. LIPITOR [Concomitant]
     Indication: CORONARY ARTERY DISEASE
     Dosage: UNK
  27. LIPITOR [Concomitant]
     Indication: BLOOD CHOLESTEROL INCREASED

REACTIONS (12)
  - Intentional overdose [Recovered/Resolved]
  - Suicide attempt [Recovered/Resolved]
  - Suicide attempt [Recovered/Resolved]
  - Bipolar disorder [Not Recovered/Not Resolved]
  - Convulsion [Not Recovered/Not Resolved]
  - Schizophrenia [Not Recovered/Not Resolved]
  - Loss of consciousness [Not Recovered/Not Resolved]
  - Depression [Not Recovered/Not Resolved]
  - Anxiety [Not Recovered/Not Resolved]
  - Hallucination, auditory [Not Recovered/Not Resolved]
  - Psychotic disorder [Not Recovered/Not Resolved]
  - Multiple injuries [Unknown]
